FAERS Safety Report 9346923 (Version 1)
Quarter: 2013Q2

REPORT INFORMATION
  Report Type: Report from Study
  Country: AR (occurrence: AR)
  Receive Date: 20130613
  Receipt Date: 20130613
  Transmission Date: 20140414
  Serious: Yes (Other)
  Sender: FDA-Public Use
  Company Number: PHHY2013AR060348

PATIENT
  Sex: Female

DRUGS (1)
  1. EXFORGE [Suspect]
     Indication: HYPERTENSION
     Dosage: 1 DF, (320/5 MG) ONE DAILY
     Route: 048
     Dates: start: 2011, end: 201301

REACTIONS (2)
  - Vein disorder [Recovered/Resolved]
  - Local swelling [Recovered/Resolved]
